FAERS Safety Report 14391738 (Version 2)
Quarter: 2018Q1

REPORT INFORMATION
  Report Type: Report from Study
  Country: DE (occurrence: DE)
  Receive Date: 20180116
  Receipt Date: 20180323
  Transmission Date: 20180509
  Serious: Yes (Other)
  Sender: FDA-Public Use
  Company Number: DE-PFIZER INC-2018017193

PATIENT

DRUGS (3)
  1. LEVETIRACETAM. [Suspect]
     Active Substance: LEVETIRACETAM
     Indication: EPILEPSY
     Dosage: 2500 MG, DAILY
  2. VIMPAT [Suspect]
     Active Substance: LACOSAMIDE
     Dosage: 200 MG, DAILY
  3. VIMPAT [Suspect]
     Active Substance: LACOSAMIDE
     Dosage: MORNING AND EVENING , 2X/DAY

REACTIONS (8)
  - Hyperacusis [Unknown]
  - Condition aggravated [Unknown]
  - Sensory disturbance [Unknown]
  - Disturbance in attention [Unknown]
  - Seizure [Unknown]
  - Cognitive disorder [Unknown]
  - Fatigue [Unknown]
  - Memory impairment [Unknown]
